FAERS Safety Report 25000198 (Version 1)
Quarter: 2025Q1

REPORT INFORMATION
  Report Type: Spontaneous
  Country: US (occurrence: US)
  Receive Date: 20250222
  Receipt Date: 20250222
  Transmission Date: 20250408
  Serious: No
  Sender: SANOFI AVENTIS
  Company Number: US-SA-2025SA049104

PATIENT
  Sex: Male

DRUGS (1)
  1. DUPIXENT [Suspect]
     Active Substance: DUPILUMAB
     Indication: Nasal polyps
     Dosage: 300 MG, QOW
     Route: 058
     Dates: start: 2020

REACTIONS (7)
  - Eye pain [Recovered/Resolved]
  - Product dose omission issue [Recovered/Resolved]
  - Vision blurred [Recovering/Resolving]
  - Arthralgia [Unknown]
  - Eye pruritus [Unknown]
  - Condition aggravated [Unknown]
  - Eye irritation [Unknown]
